FAERS Safety Report 16721791 (Version 3)
Quarter: 2020Q2

REPORT INFORMATION
  Report Type: Report from Study
  Country: CA (occurrence: CA)
  Receive Date: 20190820
  Receipt Date: 20200402
  Transmission Date: 20200713
  Serious: Yes (Hospitalization)
  Sender: FDA-Public Use
  Company Number: CA-GLAXOSMITHKLINE-CA2019AMR149140

PATIENT
  Sex: Female

DRUGS (2)
  1. MEPOLIZUMAB [Suspect]
     Active Substance: MEPOLIZUMAB
     Indication: ASTHMA
     Dosage: 100 MG, Z; MONTHLY
     Route: 042
     Dates: start: 20190724
  2. MEPOLIZUMAB [Suspect]
     Active Substance: MEPOLIZUMAB
     Dosage: 100 MG, Z (MONTHLY)
     Route: 042

REACTIONS (4)
  - Gastrointestinal infection [Recovering/Resolving]
  - Chronic obstructive pulmonary disease [Recovering/Resolving]
  - Product dose omission [Unknown]
  - Gastrointestinal inflammation [Recovering/Resolving]
